FAERS Safety Report 18951143 (Version 1)
Quarter: 2021Q1

REPORT INFORMATION
  Report Type: Spontaneous
  Country: US (occurrence: US)
  Receive Date: 20210228
  Receipt Date: 20210228
  Transmission Date: 20210420
  Serious: No
  Sender: FDA-Public Use
  Company Number: US-AMGEN-USASP2021029530

PATIENT
  Sex: Female
  Weight: 75.3 kg

DRUGS (1)
  1. MVASI [Suspect]
     Active Substance: BEVACIZUMAB-AWWB
     Indication: OVARIAN CANCER
     Dosage: UNK
     Route: 065
     Dates: start: 20200402

REACTIONS (1)
  - Blood creatinine increased [Unknown]
